FAERS Safety Report 5322077-1 (Version None)
Quarter: 2007Q2

REPORT INFORMATION
  Report Type: 
  Country: None (occurrence: None)
  Receive Date: 20070222
  Receipt Date: 20061107
  Transmission Date: 20071010
  Serious: Yes (Other)
  Sender: FDA-Public Use
  Company Number: HQWYE044209NOV06

PATIENT
  Age: 50 Year
  Sex: Female

DRUGS (7)
  1. EFFEXOR [Suspect]
     Indication: BIPOLAR DISORDER
     Dosage: 2000 MG 2X PER 1 DAY; ORAL
     Route: 048
     Dates: start: 19980101
  2. EFFEXOR [Suspect]
     Indication: DEPRESSION
     Dosage: 2000 MG 2X PER 1 DAY; ORAL
     Route: 048
     Dates: start: 19980101
  3. EFFEXOR [Suspect]
     Dosage: SEE IMAGE
     Route: 048
  4. EFFEXOR [Suspect]
     Dosage: SEE IMAGE
     Route: 048
  5. LITHIUM CARBONATE [Concomitant]
  6. LAMICTAL [Concomitant]
  7. MULTIVITAMINS (ASCORBIC ACID/ERGOCALCIFEROL/FOLIC ACID/NICOTINAMIDE/PA [Concomitant]

REACTIONS (7)
  - BLOOD PRESSURE INCREASED [None]
  - DRUG EFFECT DECREASED [None]
  - DRUG WITHDRAWAL SYNDROME [None]
  - HEADACHE [None]
  - IRRITABILITY [None]
  - NAUSEA [None]
  - TREMOR [None]
